FAERS Safety Report 13133398 (Version 2)
Quarter: 2017Q1

REPORT INFORMATION
  Report Type: Spontaneous
  Country: US (occurrence: US)
  Receive Date: 20170120
  Receipt Date: 20170303
  Transmission Date: 20170428
  Serious: No
  Sender: FDA-Public Use
  Company Number: US-BAYER-2017-009951

PATIENT
  Age: 14 Year
  Sex: Male

DRUGS (1)
  1. KOGENATE FS [Suspect]
     Active Substance: ANTIHEMOPHILIC FACTOR, HUMAN RECOMBINANT
     Indication: FACTOR VIII DEFICIENCY
     Dosage: 2000 U M/W AND DAILY AS NEEDED BLEEDS
     Route: 042
     Dates: start: 20120706

REACTIONS (1)
  - Treatment noncompliance [None]

NARRATIVE: CASE EVENT DATE: 20170108
